FAERS Safety Report 6783480-6 (Version None)
Quarter: 2010Q2

REPORT INFORMATION
  Report Type: 
  Country: None (occurrence: None)
  Receive Date: 20100622
  Receipt Date: 20100611
  Transmission Date: 20101027
  Serious: Yes (Other)
  Sender: FDA-Public Use
  Company Number: BR-SANOFI-AVENTIS-2010SA034109

PATIENT
  Age: 77 Year
  Sex: Female
  Weight: 74 kg

DRUGS (13)
  1. LANTUS [Suspect]
     Indication: TYPE 2 DIABETES MELLITUS
     Route: 058
  2. OPTIPEN [Suspect]
  3. METICORTEN [Suspect]
     Indication: PREMEDICATION
     Route: 048
     Dates: start: 20100401
  4. METICORTEN [Suspect]
     Indication: CHEMOTHERAPY
     Route: 048
     Dates: start: 20100401
  5. ANTINEOPLASTIC AGENTS [Suspect]
     Indication: CHEMOTHERAPY
     Route: 048
     Dates: start: 20100401
  6. HUMALOG [Concomitant]
     Indication: TYPE 2 DIABETES MELLITUS
     Route: 058
  7. VALSARTAN [Concomitant]
     Indication: HYPERTENSION
     Route: 048
  8. NATRILIX [Concomitant]
     Indication: HYPERTENSION
     Route: 048
  9. SELOZOK [Concomitant]
     Indication: HYPERTENSION
     Route: 048
  10. AMILORIDE HYDROCHLORIDE/FUROSEMIDE [Concomitant]
     Indication: HYPERTENSION
     Route: 048
  11. ASPIRIN [Concomitant]
     Route: 048
  12. ROSUVASTATIN CALCIUM [Concomitant]
     Route: 048
     Dates: start: 20100401
  13. OMEPRAZOLE [Concomitant]
     Indication: PREMEDICATION
     Route: 048
     Dates: start: 20100401

REACTIONS (3)
  - HYPERGLYCAEMIA [None]
  - NEOPLASM MALIGNANT [None]
  - PEMPHIGOID [None]
